FAERS Safety Report 7180397-2 (Version None)
Quarter: 2010Q4

REPORT INFORMATION
  Report Type: 
  Country: None (occurrence: None)
  Receive Date: 20101221
  Receipt Date: 20101213
  Transmission Date: 20110411
  Serious: Yes (Other)
  Sender: FDA-Public Use
  Company Number: B0683618A

PATIENT
  Age: 85 Year
  Sex: Male
  Weight: 60 kg

DRUGS (17)
  1. ZOVIRAX [Suspect]
     Indication: HERPES ZOSTER
     Dosage: 1IUAX PER DAY
     Route: 042
     Dates: start: 20100404, end: 20100404
  2. ZOVIRAX [Suspect]
     Dosage: 2IUAX PER DAY
     Route: 042
     Dates: start: 20100405, end: 20100405
  3. ZOVIRAX [Suspect]
     Dosage: 3IUAX PER DAY
     Route: 042
     Dates: start: 20100406, end: 20100408
  4. ZOVIRAX [Suspect]
     Dosage: 2IUAX PER DAY
     Route: 042
     Dates: start: 20100409, end: 20100412
  5. ZYPREXA [Suspect]
     Indication: HALLUCINATION
     Dosage: 5MG PER DAY
     Route: 048
     Dates: start: 20100219, end: 20100419
  6. VEGETAMIN A [Suspect]
     Indication: INSOMNIA
     Dosage: 1IUAX PER DAY
     Route: 048
     Dates: start: 20100222, end: 20100421
  7. WINTERMIN [Suspect]
     Indication: INSOMNIA
     Dosage: .3IUAX PER DAY
     Route: 048
     Dates: start: 20100402, end: 20100415
  8. ATARAX [Suspect]
     Indication: INSOMNIA
     Dosage: .25IUAX PER DAY
     Route: 048
     Dates: start: 20100402, end: 20100415
  9. MYSLEE [Suspect]
     Indication: INSOMNIA
     Dosage: 5MG PER DAY
     Route: 048
     Dates: start: 20100405, end: 20100412
  10. PHENOBAL [Suspect]
     Indication: INSOMNIA
     Dosage: .4IUAX PER DAY
     Route: 048
     Dates: start: 20100406, end: 20100415
  11. LANSOPRAZOLE [Suspect]
     Indication: GASTRODUODENAL ULCER
     Dosage: 15MG PER DAY
     Route: 048
     Dates: start: 20100406
  12. MAGMITT [Concomitant]
     Route: 048
  13. HYDERGINE [Concomitant]
     Route: 048
  14. ASPIRIN [Concomitant]
     Route: 048
  15. PANCREAZE [Concomitant]
     Route: 048
  16. NEUROVITAN [Concomitant]
     Route: 048
  17. SILECE [Concomitant]

REACTIONS (2)
  - HEPATIC FUNCTION ABNORMAL [None]
  - JAUNDICE [None]
